FAERS Safety Report 13024916 (Version 1)
Quarter: 2016Q4

REPORT INFORMATION
  Report Type: Spontaneous
  Country: JP (occurrence: JP)
  Receive Date: 20161213
  Receipt Date: 20161213
  Transmission Date: 20170207
  Serious: Yes (Other)
  Sender: FDA-Public Use
  Company Number: JP-TEVA-719763ISR

PATIENT
  Age: 9 Decade
  Sex: Female

DRUGS (2)
  1. RISEDRONIC ACID [Suspect]
     Active Substance: RISEDRONIC ACID
     Indication: OSTEOPOROSIS
     Dosage: UNKNOWN
     Route: 048
  2. FOSAMAC [Suspect]
     Active Substance: ALENDRONATE SODIUM
     Indication: OSTEOPOROSIS
     Dosage: UNKNOWN
     Route: 048

REACTIONS (5)
  - Exposed bone in jaw [Recovered/Resolved]
  - Impaired healing [Recovered/Resolved]
  - Osteonecrosis of jaw [Recovered/Resolved]
  - Jaw disorder [Recovered/Resolved]
  - Primary sequestrum [Recovered/Resolved]
